FAERS Safety Report 4911963-X (Version None)
Quarter: 2006Q1

REPORT INFORMATION
  Report Type: 
  Country: None (occurrence: None)
  Receive Date: 20060215
  Receipt Date: 20060131
  Transmission Date: 20060701
  Serious: Yes (Death, Life-Threatening, Hospitalization)
  Sender: FDA-Public Use
  Company Number: PHBS2006NL01629

PATIENT
  Age: 76 Year
  Sex: Male

DRUGS (9)
  1. CLOZAPINE [Suspect]
     Indication: HALLUCINATION
     Dosage: 12.5 MG, BID
     Route: 048
     Dates: start: 20051206, end: 20060101
  2. CLOZAPINE [Suspect]
     Dosage: 12.5 MG, TID
     Route: 048
     Dates: start: 20060102, end: 20060113
  3. SIMVASTATIN [Concomitant]
     Dosage: 10 MG/D
  4. BISOPROLOL [Concomitant]
     Dosage: 5 MG/D
  5. CARBIDOPA AND LEVODOPA [Concomitant]
     Dosage: 200/50, TID
  6. PERGOLIDE [Concomitant]
     Dosage: 0.05 MG, TID
  7. ACETYLSALICYLIC ACID SRT [Concomitant]
     Dosage: 80 MG/D
     Dates: end: 20060120
  8. ZYPREXA [Concomitant]
     Dosage: 2.5 MG/D
     Dates: end: 20051206
  9. LACTULOSE [Concomitant]
     Dosage: 20 ML, BID

REACTIONS (8)
  - BLADDER CATHETER PERMANENT [None]
  - CIRCULATORY COLLAPSE [None]
  - PULMONARY EMBOLISM [None]
  - PYELONEPHRITIS [None]
  - RESPIRATORY ARREST [None]
  - SEPSIS [None]
  - URINARY RETENTION [None]
  - URINARY TRACT INFECTION [None]
